FAERS Safety Report 16491915 (Version 1)
Quarter: 2019Q2

REPORT INFORMATION
  Report Type: Spontaneous
  Country: US (occurrence: US)
  Receive Date: 20190520
  Receipt Date: 20190520
  Transmission Date: 20190711
  Serious: Yes (Hospitalization)
  Sender: FDA-Public Use
  Company Number: None

PATIENT
  Age: 74 Year
  Sex: Female

DRUGS (22)
  1. CODEINE [Concomitant]
     Active Substance: CODEINE
  2. SINEMET [Concomitant]
     Active Substance: CARBIDOPA\LEVODOPA
  3. VITAMIN D3 [Concomitant]
     Active Substance: CHOLECALCIFEROL
  4. GABAPENTIN. [Concomitant]
     Active Substance: GABAPENTIN
  5. METOPROLOL TARTRATE. [Concomitant]
     Active Substance: METOPROLOL TARTRATE
  6. CLONSREPAM [Concomitant]
  7. FLOVENT [Concomitant]
     Active Substance: FLUTICASONE PROPIONATE
  8. TOLTERONDINE [Concomitant]
  9. B6 FOLIC ACID [Concomitant]
  10. METHOTREXANT [Concomitant]
     Active Substance: METHOTREXATE
  11. NEURONTIN [Concomitant]
     Active Substance: GABAPENTIN
  12. VITAMIN B12 [Concomitant]
     Active Substance: CYANOCOBALAMIN
  13. CYMBALTA [Concomitant]
     Active Substance: DULOXETINE HYDROCHLORIDE
  14. CIMZIA [Suspect]
     Active Substance: CERTOLIZUMAB PEGOL
     Indication: CROHN^S DISEASE
     Dosage: ?          OTHER FREQUENCY:ONCE A MONTH ;?
     Route: 030
     Dates: start: 20150918
  15. LEVOFLOXACIN. [Concomitant]
     Active Substance: LEVOFLOXACIN
  16. MIRVASTO GEL [Concomitant]
  17. LOSARTAN/HOT [Concomitant]
  18. NALTREXONE [Concomitant]
     Active Substance: NALTREXONE
  19. RESTASIS [Suspect]
     Active Substance: CYCLOSPORINE
  20. ALBUTEROL. [Concomitant]
     Active Substance: ALBUTEROL
  21. MORPHINE [Concomitant]
     Active Substance: MORPHINE
  22. MULTIVITAMIN FOR HER [Concomitant]

REACTIONS (2)
  - Crohn^s disease [None]
  - Foreign body aspiration [None]

NARRATIVE: CASE EVENT DATE: 201904
